FAERS Safety Report 7622981-5 (Version None)
Quarter: 2011Q3

REPORT INFORMATION
  Report Type: 
  Country: None (occurrence: None)
  Receive Date: 20110720
  Receipt Date: 20110712
  Transmission Date: 20111222
  Serious: Yes (Hospitalization)
  Sender: FDA-Public Use
  Company Number: US-SANOFI-AVENTIS-2011SA041157

PATIENT
  Age: 81 Year
  Sex: Female
  Weight: 76.2 kg

DRUGS (13)
  1. LANTUS [Suspect]
     Indication: TYPE 2 DIABETES MELLITUS
     Dosage: DOSE:22 UNIT(S)
     Route: 058
  2. REPAGLINIDE [Concomitant]
  3. MULTI-VITAMINS [Concomitant]
  4. ASPIRIN [Concomitant]
  5. CRESTOR [Concomitant]
  6. FISH OIL [Concomitant]
  7. MECLIZINE [Concomitant]
  8. METFORMIN HCL [Concomitant]
  9. METOPROLOL TARTRATE [Concomitant]
  10. VITAMIN D [Concomitant]
  11. METAMUCIL-2 [Concomitant]
  12. SOLOSTAR [Suspect]
     Indication: TYPE 2 DIABETES MELLITUS
  13. METFORMIN HYDROCHLORIDE/PIOGLITAZONE HYDROCHLORIDE [Concomitant]

REACTIONS (3)
  - CONDITION AGGRAVATED [None]
  - BLOOD GLUCOSE FLUCTUATION [None]
  - VERTIGO POSITIONAL [None]
